FAERS Safety Report 5900663-5 (Version None)
Quarter: 2008Q3

REPORT INFORMATION
  Report Type: 
  Country: None (occurrence: None)
  Receive Date: 20080926
  Receipt Date: 20080916
  Transmission Date: 20090109
  Serious: Yes (Other)
  Sender: FDA-Public Use
  Company Number: US-PFIZER INC-2008078949

PATIENT
  Sex: Female

DRUGS (6)
  1. CHANTIX [Suspect]
     Indication: SMOKING CESSATION THERAPY
     Route: 048
     Dates: start: 20080701
  2. LAMOTRIGINE [Concomitant]
  3. METOCLOPRAMIDE [Concomitant]
  4. CYMBALTA [Concomitant]
  5. ATENOLOL [Concomitant]
  6. ALPRAZOLAM [Concomitant]

REACTIONS (5)
  - DIZZINESS [None]
  - FALL [None]
  - JOINT DISLOCATION [None]
  - JOINT INJURY [None]
  - UPPER LIMB FRACTURE [None]
